FAERS Safety Report 7117617-6 (Version None)
Quarter: 2010Q4

REPORT INFORMATION
  Report Type: 
  Country: None (occurrence: None)
  Receive Date: 20101122
  Receipt Date: 20101110
  Transmission Date: 20110411
  Serious: Yes (Hospitalization, Disabling, Other)
  Sender: FDA-Public Use
  Company Number: BR-ELI_LILLY_AND_COMPANY-BR201010005722

PATIENT
  Sex: Male
  Weight: 60 kg

DRUGS (5)
  1. FORTEO [Suspect]
     Indication: OSTEOPOROSIS
     Dosage: UNK, DAILY (1/D)
     Route: 058
  2. OSCAL D /00944201/ [Concomitant]
     Indication: OSTEOPOROSIS
     Dosage: 500 MG, 2/D
     Route: 048
  3. ALENDRONATO SODICO [Concomitant]
     Indication: OSTEOPOROSIS
     Dosage: 70 MG, DAILY (1/D)
     Route: 048
  4. PROLOPA [Concomitant]
     Indication: PARKINSON'S DISEASE
     Dosage: UNK, DAILY (1/D)
     Route: 048
  5. CENTRUM [Concomitant]
     Dosage: UNK, DAILY (1/D)
     Route: 048

REACTIONS (4)
  - FALL [None]
  - MEDICAL DEVICE IMPLANTATION [None]
  - MOVEMENT DISORDER [None]
  - UPPER LIMB FRACTURE [None]
